FAERS Safety Report 12674347 (Version 1)
Quarter: 2016Q3

REPORT INFORMATION
  Report Type: Spontaneous
  Country: US (occurrence: US)
  Receive Date: 20160822
  Receipt Date: 20160822
  Transmission Date: 20161109
  Serious: No
  Sender: FDA-Public Use
  Company Number: US-BEH-2015054184

PATIENT
  Age: 56 Year
  Sex: Male
  Weight: 83.92 kg

DRUGS (22)
  1. ZEMAIRA [Suspect]
     Active Substance: .ALPHA.1-PROTEINASE INHIBITOR HUMAN
     Indication: ALPHA-1 ANTI-TRYPSIN DEFICIENCY
     Dosage: 980 MG/VL
     Route: 042
  2. DIPHENHYDRAMINE. [Concomitant]
     Active Substance: DIPHENHYDRAMINE
  3. AUGMENTIN [Concomitant]
     Active Substance: AMOXICILLIN\CLAVULANATE POTASSIUM
  4. PREDNISONE. [Concomitant]
     Active Substance: PREDNISONE
  5. MULTIVITAMINS [Concomitant]
     Active Substance: VITAMINS
  6. AMLODIPINE [Concomitant]
     Active Substance: AMLODIPINE BESYLATE
  7. OMEPRAZOLE. [Concomitant]
     Active Substance: OMEPRAZOLE
  8. PROAIR HFA [Concomitant]
     Active Substance: ALBUTEROL SULFATE
  9. VITAMIN D [Concomitant]
     Active Substance: CHOLECALCIFEROL
  10. QVAR [Concomitant]
     Active Substance: BECLOMETHASONE DIPROPIONATE
  11. CLOMIPRAMINE [Concomitant]
     Active Substance: CLOMIPRAMINE
  12. CLOTRIMAZOLE. [Concomitant]
     Active Substance: CLOTRIMAZOLE
  13. CORTIFOAM [Concomitant]
     Active Substance: HYDROCORTISONE ACETATE
  14. MAGNESIUM [Concomitant]
     Active Substance: MAGNESIUM
  15. TRIAMTERENE HCTZ [Concomitant]
     Active Substance: HYDROCHLOROTHIAZIDE\TRIAMTERENE
  16. CALCIUM [Concomitant]
     Active Substance: CALCIUM
  17. SODIUM CHLORIDE. [Concomitant]
     Active Substance: SODIUM CHLORIDE
  18. PSEUDOEPHEDRINE [Concomitant]
     Active Substance: PSEUDOEPHEDRINE
  19. EPIPEN [Concomitant]
     Active Substance: EPINEPHRINE
  20. PANTOPRAZOLE [Concomitant]
     Active Substance: PANTOPRAZOLE SODIUM
  21. LMX [Concomitant]
     Active Substance: LIDOCAINE
  22. ACCOLATE [Concomitant]
     Active Substance: ZAFIRLUKAST

REACTIONS (1)
  - Dizziness [Unknown]
